FAERS Safety Report 4522290-7 (Version None)
Quarter: 2004Q4

REPORT INFORMATION
  Report Type: 
  Country: None (occurrence: None)
  Receive Date: 20041116
  Receipt Date: 20040812
  Transmission Date: 20050328
  Serious: No
  Sender: FDA-Public Use
  Company Number: S04-USA-05588-01

PATIENT
  Age: 88 Year
  Sex: Female

DRUGS (11)
  1. NAMENDA [Suspect]
     Indication: DEMENTIA ALZHEIMER'S TYPE
     Dosage: 5 MG QD PO
     Route: 048
     Dates: start: 20040720, end: 20040726
  2. NAMENDA [Suspect]
     Indication: DEMENTIA ALZHEIMER'S TYPE
     Dosage: 10 MG QD PO
     Route: 048
     Dates: start: 20040727, end: 20040802
  3. NAMENDA [Suspect]
     Indication: DEMENTIA ALZHEIMER'S TYPE
     Dosage: 15 MG QD PO
     Route: 048
     Dates: start: 20040803, end: 20040809
  4. NAMENDA [Suspect]
     Indication: DEMENTIA ALZHEIMER'S TYPE
     Dosage: 20 MG QD PO
     Route: 048
     Dates: start: 20040810
  5. LANOXIN [Concomitant]
  6. VERELAN (VERAPAMIL HYDROCHLORIDE) [Concomitant]
  7. ASPIRIN [Concomitant]
  8. PLAVIX [Concomitant]
  9. HYDROCHLOROTHIAIZDE [Concomitant]
  10. NASONEX [Concomitant]
  11. ZYRTEC [Concomitant]

REACTIONS (2)
  - DEPRESSED LEVEL OF CONSCIOUSNESS [None]
  - SOMNOLENCE [None]
